FAERS Safety Report 13350068 (Version 1)
Quarter: 2017Q1

REPORT INFORMATION
  Report Type: Spontaneous
  Country: US (occurrence: US)
  Receive Date: 20170320
  Receipt Date: 20170320
  Transmission Date: 20170429
  Serious: No
  Sender: FDA-Public Use
  Company Number: US-ELI_LILLY_AND_COMPANY-US201608002206

PATIENT
  Sex: Female

DRUGS (3)
  1. CYMBALTA [Suspect]
     Active Substance: DULOXETINE HYDROCHLORIDE
     Dosage: 60 MG, QD
     Route: 048
     Dates: start: 2014
  2. DULOXETINE HYDROCHLORIDE. [Suspect]
     Active Substance: DULOXETINE HYDROCHLORIDE
     Indication: FIBROMYALGIA
     Dosage: 60 MG, QD
     Route: 048
  3. CYMBALTA [Suspect]
     Active Substance: DULOXETINE HYDROCHLORIDE
     Indication: FIBROMYALGIA
     Dosage: UNK, UNKNOWN
     Route: 065

REACTIONS (17)
  - Anxiety [Unknown]
  - Affect lability [Unknown]
  - Dizziness [Unknown]
  - Hyperhidrosis [Unknown]
  - Irritability [Unknown]
  - Lethargy [Unknown]
  - Agitation [Unknown]
  - Nightmare [Recovering/Resolving]
  - Hepatic enzyme increased [Unknown]
  - Somnolence [Recovering/Resolving]
  - Tremor [Unknown]
  - Fatigue [Unknown]
  - Confusional state [Unknown]
  - Paraesthesia [Unknown]
  - Drug ineffective [Recovering/Resolving]
  - Headache [Unknown]
  - Drug withdrawal syndrome [Unknown]
